FAERS Safety Report 17366303 (Version 2)
Quarter: 2020Q1

REPORT INFORMATION
  Report Type: Spontaneous
  Country: US (occurrence: US)
  Receive Date: 20200117
  Receipt Date: 20200117
  Transmission Date: 20200409
  Serious: Yes (Other)
  Sender: FDA-Public Use
  Company Number: None

PATIENT
  Age: 65 Year
  Sex: Female
  Weight: 98.88 kg

DRUGS (1)
  1. RISEDRONATE SODIUM 35MG [Suspect]
     Active Substance: RISEDRONATE SODIUM
     Indication: OSTEOPENIA
     Dosage: ?          QUANTITY:1 DF DOSAGE FORM;?
     Route: 048
     Dates: start: 20191213, end: 20191227

REACTIONS (9)
  - Flatulence [None]
  - Pain in extremity [None]
  - Neck pain [None]
  - Malaise [None]
  - Abdominal pain [None]
  - Back pain [None]
  - Diarrhoea [None]
  - Therapy cessation [None]
  - Asthenia [None]

NARRATIVE: CASE EVENT DATE: 20191213
